FAERS Safety Report 8616682-4 (Version None)
Quarter: 2012Q3

REPORT INFORMATION
  Report Type: 
  Country: None (occurrence: None)
  Receive Date: 20120823
  Receipt Date: 20120817
  Transmission Date: 20120928
  Serious: Yes (Hospitalization, Disabling, Other)
  Sender: FDA-Public Use
  Company Number: US-009507513-1204USA00782

PATIENT

DRUGS (3)
  1. FOSAMAX [Suspect]
     Dosage: UNK
     Route: 048
  2. FOSAMAX [Suspect]
     Indication: OSTEOPOROSIS
     Dosage: 70 MG, UNK
     Route: 048
     Dates: start: 20030718, end: 20110401
  3. FOSAMAX [Suspect]
     Indication: OSTEOPENIA

REACTIONS (10)
  - ORAL CAVITY FISTULA [None]
  - ARRHYTHMIA [None]
  - JAW FRACTURE [None]
  - KNEE OPERATION [None]
  - DENTAL CARIES [None]
  - FISTULA DISCHARGE [None]
  - OSTEONECROSIS OF JAW [None]
  - HYPERTENSION [None]
  - ORAL DISORDER [None]
  - SINUSITIS [None]
